FAERS Safety Report 6716028-2 (Version None)
Quarter: 2010Q2

REPORT INFORMATION
  Report Type: 
  Country: None (occurrence: None)
  Receive Date: 20100507
  Receipt Date: 20100503
  Transmission Date: 20101027
  Serious: Yes (Other)
  Sender: FDA-Public Use
  Company Number: US-JNJCH-2010010651

PATIENT
  Age: 7 Year
  Sex: Male
  Weight: 20.4 kg

DRUGS (4)
  1. CHILDREN'S ZYRTEC ALLERGY [Suspect]
     Indication: ASTHMA
     Dosage: TEXT:10MG ONE TIME A DAY
     Route: 048
  2. ADVAIR DISKUS 100/50 [Concomitant]
     Indication: ASTHMA
     Dosage: TEXT:2X A DAY
     Route: 065
  3. ALBUTEROL [Concomitant]
     Indication: ASTHMA
     Dosage: TEXT:AS NEEDED
     Route: 065
  4. ZOPINOX [Concomitant]
     Dosage: TEXT:AS NEEDED
     Route: 065

REACTIONS (4)
  - EAR INFECTION [None]
  - LUNG INFECTION [None]
  - PRODUCT QUALITY ISSUE [None]
  - SINUSITIS [None]
